FAERS Safety Report 7551882-6 (Version None)
Quarter: 2011Q2

REPORT INFORMATION
  Report Type: 
  Country: None (occurrence: None)
  Receive Date: 20110616
  Receipt Date: 20110607
  Transmission Date: 20111010
  Serious: Yes (Death, Life-Threatening, Other)
  Sender: FDA-Public Use
  Company Number: JP-BRACCO-004896

PATIENT
  Sex: Female
  Weight: 54 kg

DRUGS (10)
  1. AMLODIPINE [Concomitant]
     Indication: HYPERTENSION
     Route: 048
  2. IOPAMIDOL [Suspect]
     Indication: AORTIC DISSECTION
     Route: 042
     Dates: start: 20110406, end: 20110406
  3. LASIX [Concomitant]
     Indication: FLUID RETENTION
     Route: 048
  4. IOPAMIDOL [Suspect]
     Indication: COMPUTERISED TOMOGRAM THORAX
     Route: 042
     Dates: start: 20110305, end: 20110305
  5. SIGMART [Concomitant]
     Indication: PROPHYLAXIS
     Route: 048
  6. LIPITOR [Concomitant]
     Indication: HYPERCHOLESTEROLAEMIA
     Route: 048
  7. CARVEDILOL [Concomitant]
     Indication: HYPERTENSION
  8. ADALAT [Concomitant]
     Indication: HYPERTENSION
     Route: 048
  9. ASPIRIN [Concomitant]
     Indication: PROPHYLAXIS
     Route: 048
  10. CANDESARTAN CILEXETIL [Concomitant]
     Indication: HYPERTENSION
     Route: 048

REACTIONS (6)
  - PYREXIA [None]
  - HYPOXIC-ISCHAEMIC ENCEPHALOPATHY [None]
  - GASTROINTESTINAL PERFORATION [None]
  - ANAPHYLACTIC SHOCK [None]
  - SEPTIC SHOCK [None]
  - PERITONITIS [None]
